FAERS Safety Report 8866235 (Version 3)
Quarter: 2013Q1

REPORT INFORMATION
  Report Type: Report from Study
  Country: NZ (occurrence: NZ)
  Receive Date: 20121025
  Receipt Date: 20130306
  Transmission Date: 20140127
  Serious: Yes (Hospitalization)
  Sender: FDA-Public Use
  Company Number: PHHY2012NZ095423

PATIENT
  Sex: Female

DRUGS (1)
  1. CLOZARIL [Suspect]
     Dosage: UNK
     Dates: start: 20120724, end: 20121107

REACTIONS (4)
  - Urinary tract infection [Unknown]
  - Abnormal behaviour [Unknown]
  - Incontinence [Unknown]
  - Drug ineffective [Unknown]
